FAERS Safety Report 18436914 (Version 1)
Quarter: 2020Q4

REPORT INFORMATION
  Report Type: Spontaneous
  Country: US (occurrence: US)
  Receive Date: 20201028
  Receipt Date: 20201028
  Transmission Date: 20210114
  Serious: Yes (Hospitalization)
  Sender: FDA-Public Use
  Company Number: US-MYLANLABS-2020M1090542

PATIENT
  Age: 64 Year
  Sex: Male

DRUGS (1)
  1. PIPERACILLIN/TAZOBACTAM [Suspect]
     Active Substance: PIPERACILLIN SODIUM\TAZOBACTAM SODIUM
     Indication: EVIDENCE BASED TREATMENT
     Dosage: UNK
     Route: 065

REACTIONS (7)
  - Pleural effusion [Recovering/Resolving]
  - Pulmonary oedema [Recovering/Resolving]
  - Hypersensitivity myocarditis [Recovering/Resolving]
  - Sinus tachycardia [Recovering/Resolving]
  - Respiratory distress [Recovering/Resolving]
  - Rash maculo-papular [Recovering/Resolving]
  - Pericardial effusion [Recovering/Resolving]
